FAERS Safety Report 4822541-5 (Version None)
Quarter: 2005Q4

REPORT INFORMATION
  Report Type: 
  Country: None (occurrence: None)
  Receive Date: 20051108
  Receipt Date: 20020104
  Transmission Date: 20060501
  Serious: Yes (Hospitalization)
  Sender: FDA-Public Use
  Company Number: CH-AVENTIS-200210075EU

PATIENT
  Sex: Female
  Weight: 72 kg

DRUGS (2)
  1. RILUZOLE [Suspect]
     Indication: HUNTINGTON'S CHOREA
     Route: 048
     Dates: start: 20000711
  2. UNKNOWN DRUG [Concomitant]

REACTIONS (8)
  - CORNEAL INFILTRATES [None]
  - HERPES OPHTHALMIC [None]
  - KERATITIS BACTERIAL [None]
  - LYMPHOPENIA [None]
  - OCULAR HYPERAEMIA [None]
  - STAPHYLOCOCCAL INFECTION [None]
  - ULCERATIVE KERATITIS [None]
  - VISUAL ACUITY REDUCED [None]
